FAERS Safety Report 6278766-8 (Version None)
Quarter: 2009Q3

REPORT INFORMATION
  Report Type: 
  Country: None (occurrence: None)
  Receive Date: 20090721
  Receipt Date: 20090707
  Transmission Date: 20100115
  Serious: Yes (Hospitalization)
  Sender: FDA-Public Use
  Company Number: 237563K09USA

PATIENT
  Age: 33 Year
  Sex: Female
  Weight: 47 kg

DRUGS (1)
  1. REBIF [Suspect]
     Indication: MULTIPLE SCLEROSIS
     Dosage: 44 MCG, 3 IN 1 WEEKS, SUBCUTANEOUS
     Route: 058
     Dates: start: 20070808, end: 20090501

REACTIONS (4)
  - INJECTION SITE EXTRAVASATION [None]
  - INJECTION SITE INFECTION [None]
  - STREPTOCOCCAL INFECTION [None]
  - WOUND INFECTION STAPHYLOCOCCAL [None]
